FAERS Safety Report 8853516 (Version 1)
Quarter: 2012Q4

REPORT INFORMATION
  Report Type: 
  Country: US (occurrence: US)
  Receive Date: 20121023
  Receipt Date: 20121023
  Transmission Date: 20130627
  Serious: No
  Sender: FDA-Public Use
  Company Number: US-BIOGENIDEC-2012BI044817

PATIENT
  Sex: Female

DRUGS (1)
  1. TYSABRI [Suspect]
     Indication: MULTIPLE SCLEROSIS
     Route: 042
     Dates: start: 20110721

REACTIONS (11)
  - Pain [Unknown]
  - Discomfort [Unknown]
  - Nervousness [Unknown]
  - Colitis [Unknown]
  - Mobility decreased [Unknown]
  - Emotional distress [Unknown]
  - Gastric disorder [Unknown]
  - Palpitations [Unknown]
  - Surgery [Unknown]
  - Drug effect decreased [Unknown]
  - Fatigue [Unknown]
